FAERS Safety Report 23949964 (Version 1)
Quarter: 2024Q2

REPORT INFORMATION
  Report Type: Spontaneous
  Country: US (occurrence: None)
  Receive Date: 20240606
  Receipt Date: 20240606
  Transmission Date: 20240716
  Serious: Yes (Other)
  Sender: FDA-Public Use
  Company Number: None

PATIENT
  Age: 62 Year
  Sex: Female
  Weight: 79.2 kg

DRUGS (8)
  1. METHOCARBAMOL [Suspect]
     Active Substance: METHOCARBAMOL
     Dosage: OTHER QUANTITY : 2 TABLET(S);?FREQUENCY : 3 TIMES A DAY;?
     Route: 048
     Dates: start: 20240528, end: 20240604
  2. AMITRIPTYLINE [Concomitant]
  3. Hydrocodone/Acetaminiphin [Concomitant]
  4. Quail gummies [Concomitant]
  5. turmeric complex+50 [Concomitant]
  6. ginger Kirkland adult multivitamin gummies [Concomitant]
  7. Natrol [Concomitant]
  8. Melatonin Gummy [Concomitant]

REACTIONS (7)
  - Feeling abnormal [None]
  - Malaise [None]
  - Brain fog [None]
  - Agitation [None]
  - Therapy cessation [None]
  - Thinking abnormal [None]
  - Helplessness [None]

NARRATIVE: CASE EVENT DATE: 20240604
